FAERS Safety Report 5694428-X (Version None)
Quarter: 2008Q2

REPORT INFORMATION
  Report Type: 
  Country: None (occurrence: None)
  Receive Date: 20080404
  Receipt Date: 20080328
  Transmission Date: 20081010
  Serious: Yes (Hospitalization, Other)
  Sender: FDA-Public Use
  Company Number: PHRM2008FR01129

PATIENT
  Age: 75 Year
  Sex: Female

DRUGS (8)
  1. NEORAL [Suspect]
     Indication: RENAL TRANSPLANT
     Dosage: 5 MG/DAY
     Route: 048
     Dates: start: 20080117, end: 20080120
  2. PROGRAF [Suspect]
     Route: 048
     Dates: start: 20070430, end: 20080117
  3. PROGRAF [Suspect]
     Dosage: 2 TABLETS/DAY
     Route: 048
     Dates: start: 20080121, end: 20080127
  4. CELLCEPT [Concomitant]
     Dates: start: 20070430, end: 20080117
  5. PREDNISONE [Concomitant]
     Dates: start: 20070430
  6. IMUREL [Concomitant]
     Dates: start: 20080121
  7. CATAPRES [Concomitant]
     Dates: start: 20070601, end: 20080120
  8. AMLOR [Concomitant]
     Dates: start: 20070601, end: 20080120

REACTIONS (19)
  - AGITATION [None]
  - ANOREXIA [None]
  - BLOOD CREATININE INCREASED [None]
  - BLOOD UREA INCREASED [None]
  - CONFUSIONAL STATE [None]
  - DEHYDRATION [None]
  - DIALYSIS [None]
  - DISORIENTATION [None]
  - FLUID REPLACEMENT [None]
  - HYPERNATRAEMIA [None]
  - INCOHERENT [None]
  - LEUKOCYTOSIS [None]
  - LUNG DISORDER [None]
  - METABOLIC ENCEPHALOPATHY [None]
  - MYOCLONUS [None]
  - OLIGURIA [None]
  - PYREXIA [None]
  - STUPOR [None]
  - TREMOR [None]
